FAERS Safety Report 18915286 (Version 2)
Quarter: 2021Q4

REPORT INFORMATION
  Report Type: Report from Study
  Country: US (occurrence: US)
  Receive Date: 20210219
  Receipt Date: 20211031
  Transmission Date: 20220303
  Serious: Yes (Death, Hospitalization)
  Sender: FDA-Public Use
  Company Number: US-ACCORD-217497

PATIENT
  Age: 73 Year
  Sex: Male

DRUGS (1)
  1. CLOZAPINE [Suspect]
     Active Substance: CLOZAPINE
     Indication: Product used for unknown indication
     Route: 048

REACTIONS (2)
  - Neutrophilia [Recovered/Resolved]
  - Death [Fatal]

NARRATIVE: CASE EVENT DATE: 20201206
